FAERS Safety Report 23383951 (Version 2)
Quarter: 2024Q1

REPORT INFORMATION
  Report Type: Spontaneous
  Country: TW (occurrence: TW)
  Receive Date: 20240109
  Receipt Date: 20240319
  Transmission Date: 20240410
  Serious: No
  Sender: FDA-Public Use
  Company Number: TW-ELI_LILLY_AND_COMPANY-TW202401003701

PATIENT
  Age: 60 Year
  Sex: Male
  Weight: 55 kg

DRUGS (1)
  1. CIALIS [Suspect]
     Active Substance: TADALAFIL
     Indication: Product used for unknown indication
     Dosage: 5 MG, DAILY
     Route: 048
     Dates: start: 20230922

REACTIONS (2)
  - Eye pain [Recovering/Resolving]
  - Vision blurred [Recovering/Resolving]

NARRATIVE: CASE EVENT DATE: 20231001
